FAERS Safety Report 24142785 (Version 1)
Quarter: 2024Q3

REPORT INFORMATION
  Report Type: Spontaneous
  Country: US (occurrence: None)
  Receive Date: 20240726
  Receipt Date: 20240726
  Transmission Date: 20241017
  Serious: Yes (Life-Threatening)
  Sender: Public
  Company Number: None

PATIENT
  Age: 82 Year
  Sex: Male
  Weight: 98 kg

DRUGS (1)
  1. MONOFERRIC [Suspect]
     Active Substance: FERRIC DERISOMALTOSE
     Indication: Iron deficiency anaemia
     Dosage: 1000 MG ONCE INTRAVENOUS DRIP
     Route: 041
     Dates: start: 20240725, end: 20240725

REACTIONS (2)
  - Cardiac arrest [None]
  - Infusion related reaction [None]

NARRATIVE: CASE EVENT DATE: 20240725
